FAERS Safety Report 9057302 (Version 1)
Quarter: 2013Q1

REPORT INFORMATION
  Report Type: Spontaneous
  Country: KR (occurrence: KR)
  Receive Date: 20130131
  Receipt Date: 20130131
  Transmission Date: 20140127
  Serious: Yes (Hospitalization)
  Sender: FDA-Public Use
  Company Number: KR-GLAXOSMITHKLINE-B0863515A

PATIENT
  Age: 42 Year
  Sex: Female

DRUGS (5)
  1. LAMICTAL [Suspect]
     Indication: BIPOLAR DISORDER
     Route: 065
     Dates: start: 20130102, end: 201301
  2. DEPAKOTE [Concomitant]
     Indication: BIPOLAR DISORDER
     Dosage: 900MG PER DAY
     Dates: end: 20130101
  3. ZOLOFT [Concomitant]
     Dosage: 50MG PER DAY
  4. DIVALPROEX [Concomitant]
     Indication: BIPOLAR DISORDER
     Dosage: 600MG PER DAY
     Dates: start: 20130102, end: 20130108
  5. DEPAKOTE [Concomitant]
     Indication: BIPOLAR DISORDER
     Dosage: 500MG PER DAY
     Dates: start: 20130109, end: 20130115

REACTIONS (3)
  - Stevens-Johnson syndrome [Not Recovered/Not Resolved]
  - Rash [Not Recovered/Not Resolved]
  - Drug interaction [Unknown]
